FAERS Safety Report 9497135 (Version 2)
Quarter: 2013Q4

REPORT INFORMATION
  Report Type: Spontaneous
  Country: US (occurrence: US)
  Receive Date: 20130904
  Receipt Date: 20131106
  Transmission Date: 20140711
  Serious: No
  Sender: FDA-Public Use
  Company Number: US-AMGEN-USASP2013054917

PATIENT
  Age: 76 Year
  Sex: Female

DRUGS (2)
  1. ENBREL [Suspect]
     Indication: PSORIASIS
     Dosage: 50 MG, QWK
     Route: 065
     Dates: start: 19990101
  2. WARFARIN [Concomitant]
     Dosage: UNK

REACTIONS (2)
  - Injection site bruising [Not Recovered/Not Resolved]
  - Memory impairment [Not Recovered/Not Resolved]
